APPROVED DRUG PRODUCT: KUVAN
Active Ingredient: SAPROPTERIN DIHYDROCHLORIDE
Strength: 100MG
Dosage Form/Route: TABLET;ORAL
Application: N022181 | Product #001 | TE Code: AB
Applicant: BIOMARIN PHARMACEUTICAL INC
Approved: Dec 13, 2007 | RLD: Yes | RS: Yes | Type: RX

PATENTS:
Patent 7566462 | Expires: Nov 16, 2025
Patent 8003126 | Expires: Nov 16, 2025
Patent 7566462*PED | Expires: May 16, 2026
Patent 8003126*PED | Expires: May 16, 2026